FAERS Safety Report 15524830 (Version 1)
Quarter: 2018Q4

REPORT INFORMATION
  Report Type: Spontaneous
  Country: IN (occurrence: IN)
  Receive Date: 20181019
  Receipt Date: 20181019
  Transmission Date: 20190205
  Serious: Yes (Other)
  Sender: FDA-Public Use
  Company Number: IN-SA-2018SA197390

PATIENT
  Age: 60 Year
  Sex: Female

DRUGS (5)
  1. HYDROCORTISONE SALT NOT SPECIFIED [Suspect]
     Active Substance: HYDROCORTISONE
     Indication: POSTPARTUM HYPOPITUITARISM
     Dosage: 20 MG, QD
     Route: 065
  2. PREDNISOLONE. [Suspect]
     Active Substance: PREDNISOLONE
     Dosage: 5 MG QD
     Route: 065
  3. PREDNISOLONE. [Suspect]
     Active Substance: PREDNISOLONE
     Dosage: 5 MG/2.5 MG ON ALTERNATE DAYS
     Route: 065
  4. THYROXINE [Concomitant]
     Active Substance: LEVOTHYROXINE
     Indication: POSTPARTUM HYPOPITUITARISM
     Dosage: UNK
  5. PREDNISOLONE. [Suspect]
     Active Substance: PREDNISOLONE
     Indication: POSTPARTUM HYPOPITUITARISM
     Dosage: INCREASE OF PREDNISOLONE 5MG DOSE TO 7.5 MG
     Route: 048

REACTIONS (5)
  - Swelling face [Unknown]
  - Osteonecrosis [Unknown]
  - Arthralgia [Unknown]
  - Erythema [Unknown]
  - Cushingoid [Unknown]
